FAERS Safety Report 18276993 (Version 1)
Quarter: 2020Q3

REPORT INFORMATION
  Report Type: Spontaneous
  Country: US (occurrence: US)
  Receive Date: 20200916
  Receipt Date: 20200916
  Transmission Date: 20201103
  Serious: No
  Sender: FDA-Public Use
  Company Number: None

PATIENT
  Age: 80 Year
  Sex: Female
  Weight: 65.25 kg

DRUGS (22)
  1. FAMOTIDINE 40MG [Concomitant]
     Active Substance: FAMOTIDINE
  2. EMEND [Concomitant]
     Active Substance: APREPITANT
  3. APREPITANT 80, 125MG [Concomitant]
  4. TYLENOL 8 HOUR ARTHRITIS PAIN 650MG [Concomitant]
  5. DEXAMETHASONE 4MG [Concomitant]
     Active Substance: DEXAMETHASONE
  6. TURMERIC [Concomitant]
     Active Substance: HERBALS\TURMERIC
  7. ALEVE [Concomitant]
     Active Substance: NAPROXEN SODIUM
  8. ZOFRAN 8MG [Concomitant]
  9. SODIUM CHLORIDE FLUSH 0.9% [Concomitant]
  10. DIPHENHYDRAMINE 50MG/ML [Concomitant]
     Active Substance: DIPHENHYDRAMINE
  11. ACYCLOVIR 400MG [Concomitant]
     Active Substance: ACYCLOVIR
  12. SARCLISA 100MG/5ML [Concomitant]
  13. FENOFIBRATE 160MG [Concomitant]
  14. OLANZAPINE 2.5MG [Concomitant]
     Active Substance: OLANZAPINE
  15. LOMOTIL 2.5?0.025MG [Concomitant]
  16. PROBIOTIC [Concomitant]
     Active Substance: PROBIOTICS NOS
  17. RACEPINEPHRINE [Concomitant]
     Active Substance: RACEPINEPHRINE
  18. MULTIVITAMIN [Concomitant]
     Active Substance: VITAMINS
  19. VITAMIN C [Concomitant]
     Active Substance: ASCORBIC ACID
  20. XPOVIO [Suspect]
     Active Substance: SELINEXOR
     Indication: PLASMA CELL MYELOMA
     Dosage: ?          OTHER FREQUENCY:WEEKLY;?
     Route: 048
     Dates: start: 20200618
  21. ASPIRIN 325MG [Concomitant]
     Active Substance: ASPIRIN
  22. IPRATROPIUM?ALBUTEROL 0.5?2.5MG [Concomitant]

REACTIONS (1)
  - Diarrhoea [None]

NARRATIVE: CASE EVENT DATE: 20200916
